FAERS Safety Report 8764724 (Version 1)
Quarter: 2012Q4

REPORT INFORMATION
  Report Type: 
  Country: US (occurrence: US)
  Receive Date: 20120831
  Receipt Date: 20120831
  Transmission Date: 20130627
  Serious: Yes (Other)
  Sender: FDA-Public Use
  Company Number: US-TEVA-356454USA

PATIENT
  Sex: Female
  Weight: 56.75 kg

DRUGS (3)
  1. NUVIGIL [Suspect]
     Indication: HYPERSOMNIA
     Route: 048
     Dates: start: 201208
  2. NUVIGIL [Suspect]
     Route: 048
     Dates: start: 201208
  3. ADDERALL [Concomitant]
     Indication: HYPERSOMNIA
     Dosage: tapered off
     Route: 048
     Dates: end: 20120815

REACTIONS (3)
  - Rash [Not Recovered/Not Resolved]
  - Headache [Not Recovered/Not Resolved]
  - Off label use [Unknown]
